FAERS Safety Report 11884091 (Version 1)
Quarter: 2016Q1

REPORT INFORMATION
  Report Type: Spontaneous
  Country: US (occurrence: US)
  Receive Date: 20160102
  Receipt Date: 20160102
  Transmission Date: 20160526
  Serious: No
  Sender: FDA-Public Use
  Company Number: US-TEVA-619714USA

PATIENT
  Age: 67 Year
  Sex: Female
  Weight: 62 kg

DRUGS (4)
  1. TREANDA [Suspect]
     Active Substance: BENDAMUSTINE HYDROCHLORIDE
     Dates: start: 20151214
  2. RITUXAN [Concomitant]
     Active Substance: RITUXIMAB
  3. TREANDA [Suspect]
     Active Substance: BENDAMUSTINE HYDROCHLORIDE
     Indication: CHRONIC LYMPHOCYTIC LEUKAEMIA
     Dates: start: 20151019
  4. TREANDA [Suspect]
     Active Substance: BENDAMUSTINE HYDROCHLORIDE
     Dosage: 2ND CYCLE
     Dates: start: 20151116

REACTIONS (4)
  - Flushing [Unknown]
  - Erythema [Unknown]
  - Petechiae [Unknown]
  - Skin tightness [Unknown]

NARRATIVE: CASE EVENT DATE: 20151117
